FAERS Safety Report 7593991-1 (Version None)
Quarter: 2011Q3

REPORT INFORMATION
  Report Type: 
  Country: None (occurrence: None)
  Receive Date: 20110706
  Receipt Date: 20110628
  Transmission Date: 20111222
  Serious: Yes (Hospitalization, Other)
  Sender: FDA-Public Use
  Company Number: JP-CEPHALON-2010006593

PATIENT
  Sex: Female
  Weight: 41 kg

DRUGS (15)
  1. GRANISETRON HCL [Concomitant]
  2. PREDNISOLONE [Concomitant]
  3. CEFEPIME HYDROCHLORIDE [Concomitant]
  4. MAGNESIUM OXIDE [Concomitant]
  5. BENDAMUSTINE HCL [Suspect]
     Indication: MANTLE CELL LYMPHOMA
     Route: 042
     Dates: start: 20101214, end: 20101215
  6. BENDAMUSTINE HCL [Suspect]
     Route: 042
     Dates: start: 20110512
  7. FLUCONAZOLE [Concomitant]
  8. MEROPENEM [Concomitant]
     Dates: start: 20101223, end: 20110111
  9. NAPROXEN [Concomitant]
     Dates: start: 20110108, end: 20110125
  10. SUCRALFATE [Concomitant]
  11. LANSOPRAZOLE [Concomitant]
  12. BENDAMUSTINE HCL [Suspect]
     Route: 042
     Dates: start: 20110331, end: 20110401
  13. SULFAMETHOXAZOLE AND TRIMETHOPRIM [Concomitant]
     Dates: start: 20101214
  14. ALLOPURINOL [Concomitant]
  15. SODIUM ALGINATE [Concomitant]

REACTIONS (8)
  - BONE MARROW FAILURE [None]
  - NEUTROPHIL COUNT DECREASED [None]
  - COUGH [None]
  - PYREXIA [None]
  - FEBRILE NEUTROPENIA [None]
  - PLATELET COUNT DECREASED [None]
  - NEUTROPENIA [None]
  - STOMATITIS [None]
